FAERS Safety Report 21985709 (Version 1)
Quarter: 2023Q1

REPORT INFORMATION
  Report Type: Spontaneous
  Country: US (occurrence: None)
  Receive Date: 20230211
  Receipt Date: 20230211
  Transmission Date: 20230418
  Serious: Yes (Other)
  Sender: FDA-Public Use
  Company Number: None

PATIENT
  Age: 21 Year
  Sex: Male
  Weight: 94.5 kg

DRUGS (1)
  1. .DELTA.8-TETRAHYDROCANNABINOL\HERBALS [Suspect]
     Active Substance: .DELTA.8-TETRAHYDROCANNABINOL\HERBALS
     Indication: Pain
     Dosage: OTHER QUANTITY : 1 1 GUMMY;?FREQUENCY : AS NEEDED;?
     Route: 048
     Dates: start: 20230210, end: 20230210

REACTIONS (2)
  - Hallucination, auditory [None]
  - Psychotic disorder [None]

NARRATIVE: CASE EVENT DATE: 20230210
